FAERS Safety Report 18044965 (Version 2)
Quarter: 2020Q4

REPORT INFORMATION
  Report Type: Spontaneous
  Country: US (occurrence: US)
  Receive Date: 20200720
  Receipt Date: 20201111
  Transmission Date: 20210113
  Serious: Yes (Hospitalization, Disabling, Other)
  Sender: FDA-Public Use
  Company Number: US-PURDUE-USA-2020-0153414

PATIENT
  Sex: Female

DRUGS (9)
  1. OXYCODONE HYDROCHLORIDE (SIMILAR TO NDA 22-272) [Suspect]
     Active Substance: OXYCODONE HYDROCHLORIDE
     Indication: BACK DISORDER
  2. VICODIN [Suspect]
     Active Substance: ACETAMINOPHEN\HYDROCODONE BITARTRATE
     Indication: ARTHRITIS
  3. VICODIN [Suspect]
     Active Substance: ACETAMINOPHEN\HYDROCODONE BITARTRATE
     Indication: PAIN
     Dosage: 1 DF, Q6H
     Route: 048
     Dates: start: 2011, end: 2012
  4. OXYCODONE HYDROCHLORIDE (SIMILAR TO NDA 22-272) [Suspect]
     Active Substance: OXYCODONE HYDROCHLORIDE
     Indication: ARTHRITIS
     Dosage: 10 MG, BID
     Route: 048
     Dates: start: 2012, end: 2018
  5. KADIAN [Suspect]
     Active Substance: MORPHINE SULFATE
     Indication: PAIN
     Dosage: UNK
     Route: 048
     Dates: start: 2014
  6. KADIAN [Suspect]
     Active Substance: MORPHINE SULFATE
     Indication: BACK DISORDER
  7. VICODIN [Suspect]
     Active Substance: ACETAMINOPHEN\HYDROCODONE BITARTRATE
     Indication: BACK DISORDER
  8. KADIAN [Suspect]
     Active Substance: MORPHINE SULFATE
     Indication: ARTHRITIS
  9. OXYCODONE HYDROCHLORIDE (SIMILAR TO NDA 22-272) [Suspect]
     Active Substance: OXYCODONE HYDROCHLORIDE
     Indication: PAIN
     Dosage: 5 MG, BID
     Route: 048
     Dates: start: 2012, end: 2018

REACTIONS (15)
  - Memory impairment [Unknown]
  - Carpal tunnel syndrome [Unknown]
  - Psychiatric symptom [Unknown]
  - Disability [Unknown]
  - Confusional state [Unknown]
  - Drug dependence [Unknown]
  - Fibromyalgia [Unknown]
  - Basal cell carcinoma [Unknown]
  - Abnormal behaviour [Unknown]
  - Tremor [Unknown]
  - Hospitalisation [Unknown]
  - Pneumonia [Unknown]
  - Illness [Recovered/Resolved]
  - Drug withdrawal syndrome [Unknown]
  - Depression [Unknown]

NARRATIVE: CASE EVENT DATE: 2011
